FAERS Safety Report 5267289-0 (Version None)
Quarter: 2007Q1

REPORT INFORMATION
  Report Type: 
  Country: None (occurrence: None)
  Receive Date: 20070316
  Receipt Date: 20070305
  Transmission Date: 20070707
  Serious: Yes (Other)
  Sender: FDA-Public Use
  Company Number: J200700206

PATIENT
  Age: 91 Year
  Sex: Female

DRUGS (9)
  1. ALLOPURINOL [Suspect]
     Route: 048
     Dates: start: 20030412, end: 20061228
  2. AMOXICILLIN TRIHYDRATE [Suspect]
     Indication: WOUND INFECTION
     Dosage: 250MG THREE TIMES PER DAY
     Route: 048
     Dates: start: 20061227, end: 20061230
  3. TICLOPIDINE HYDROCHLORIDE [Suspect]
     Indication: CEREBRAL INFARCTION
     Dosage: 100MG PER DAY
     Route: 048
     Dates: start: 20030522, end: 20061229
  4. RANITIDINE HYDROCHLORIDE [Concomitant]
     Indication: GASTRITIS
     Dosage: 150MG PER DAY
     Route: 048
     Dates: start: 20060728, end: 20061229
  5. UNSPECIFIED DRUG [Concomitant]
     Dosage: 2G TWICE PER DAY
     Route: 048
     Dates: start: 20060301, end: 20061229
  6. LASIX [Concomitant]
     Route: 048
     Dates: start: 20050719
  7. CEFAMEZIN [Concomitant]
     Indication: WOUND INFECTION
     Dosage: 1G TWICE PER DAY
     Dates: start: 20061230, end: 20070109
  8. LOSARTAN POTASSIUM [Concomitant]
     Indication: HYPERTENSION
     Dosage: 25MG PER DAY
     Dates: start: 20030322, end: 20061229
  9. FERROMIA [Concomitant]
     Route: 048
     Dates: start: 20030611, end: 20061226

REACTIONS (13)
  - DIARRHOEA [None]
  - ERYTHEMA [None]
  - ERYTHEMA OF EYELID [None]
  - EYE DISCHARGE [None]
  - FACE OEDEMA [None]
  - ILL-DEFINED DISORDER [None]
  - IMPETIGO [None]
  - OEDEMA PERIPHERAL [None]
  - PRURITUS [None]
  - PURULENT DISCHARGE [None]
  - RASH [None]
  - SKIN EROSION [None]
  - STEVENS-JOHNSON SYNDROME [None]
